FAERS Safety Report 5367602-X (Version None)
Quarter: 2007Q2

REPORT INFORMATION
  Report Type: 
  Country: None (occurrence: None)
  Receive Date: 20070622
  Receipt Date: 20070613
  Transmission Date: 20071010
  Serious: Yes (Disabling)
  Sender: FDA-Public Use
  Company Number: CA-SANOFI-SYNTHELABO-A01200706351

PATIENT
  Age: 77 Year
  Sex: Male

DRUGS (8)
  1. COUMADIN [Concomitant]
     Indication: TRANSIENT ISCHAEMIC ATTACK
     Route: 048
     Dates: start: 20030101
  2. COUMADIN [Concomitant]
     Indication: THROMBOSIS
     Route: 048
     Dates: start: 20030101
  3. LIPITOR [Concomitant]
     Indication: TRANSIENT ISCHAEMIC ATTACK
     Dosage: UNK
     Route: 048
     Dates: start: 20030101
  4. PLAQUENIL [Concomitant]
     Indication: ARTHRITIS
     Dosage: UNK
     Route: 048
  5. PLAVIX [Suspect]
     Indication: THROMBOSIS
     Route: 048
     Dates: start: 20060901, end: 20070501
  6. PLAVIX [Suspect]
     Indication: POLYCYTHAEMIA VERA
     Route: 048
     Dates: start: 20060901, end: 20070501
  7. PLAVIX [Suspect]
     Route: 048
     Dates: start: 20060901, end: 20070501
  8. ^THYROID NOS^ [Concomitant]
     Indication: DRUG USE FOR UNKNOWN INDICATION
     Dosage: UNK
     Route: 048

REACTIONS (1)
  - BLINDNESS UNILATERAL [None]
